FAERS Safety Report 22627372 (Version 1)
Quarter: 2023Q2

REPORT INFORMATION
  Report Type: Spontaneous
  Country: US (occurrence: US)
  Receive Date: 20230622
  Receipt Date: 20230622
  Transmission Date: 20230721
  Serious: Yes (Hospitalization, Other)
  Sender: FDA-Public Use
  Company Number: US-BRISTOL-MYERS SQUIBB COMPANY-2023-087420

PATIENT
  Age: 75 Year
  Sex: Female

DRUGS (1)
  1. POMALYST [Suspect]
     Active Substance: POMALIDOMIDE
     Indication: Plasma cell myeloma
     Dosage: FREQUENCY: ONCE DAILY FOR 21 DAY THEN 7 DAY OFF
     Route: 048
     Dates: start: 20230517

REACTIONS (3)
  - Lethargy [Unknown]
  - Loss of consciousness [Unknown]
  - Product dose omission issue [Unknown]

NARRATIVE: CASE EVENT DATE: 20230618
